FAERS Safety Report 21761223 (Version 1)
Quarter: 2022Q4

REPORT INFORMATION
  Report Type: Report from Study
  Country: US (occurrence: US)
  Receive Date: 20221221
  Receipt Date: 20221221
  Transmission Date: 20230112
  Serious: Yes (Hospitalization)
  Sender: FDA-Public Use
  Company Number: US-AMGEN-USACT2022212987

PATIENT
  Age: 5 Year
  Sex: Male
  Weight: 21.6 kg

DRUGS (4)
  1. BLINATUMOMAB [Suspect]
     Active Substance: BLINATUMOMAB
     Indication: B precursor type acute leukaemia
     Dosage: 15 MICROGRAM/SQ. METER, QD
     Route: 040
     Dates: start: 20221003, end: 202210
  2. BLINATUMOMAB [Suspect]
     Active Substance: BLINATUMOMAB
     Dosage: DOSE INCREASED, TOTAL DOSE: 352 MCG
     Route: 040
     Dates: start: 202210, end: 20221031
  3. DEXAMETHASONE [Suspect]
     Active Substance: DEXAMETHASONE
     Indication: B precursor type acute leukaemia
     Dosage: UNK, TOTAL DOSE: 4.4 MG
     Route: 065
     Dates: start: 20221003, end: 20221003
  4. METHOTREXATE [Suspect]
     Active Substance: METHOTREXATE
     Indication: B precursor type acute leukaemia
     Dosage: UNK, TOTAL DOSE: 12 MG
     Route: 065
     Dates: start: 20221003, end: 20221003

REACTIONS (1)
  - Device infusion issue [Recovered/Resolved]

NARRATIVE: CASE EVENT DATE: 20221013
